FAERS Safety Report 25151226 (Version 1)
Quarter: 2025Q2

REPORT INFORMATION
  Report Type: Spontaneous
  Country: US (occurrence: US)
  Receive Date: 20250402
  Receipt Date: 20250402
  Transmission Date: 20250716
  Serious: No
  Sender: NEUROCRINE BIOSCIENCES
  Company Number: US-NEUROCRINE BIOSCIENCES INC.-2025NBI03591

PATIENT
  Age: 62 Year
  Sex: Male

DRUGS (1)
  1. INGREZZA [Suspect]
     Active Substance: VALBENAZINE
     Indication: Product used for unknown indication
     Route: 065

REACTIONS (4)
  - Heart rate irregular [Unknown]
  - Feeling abnormal [Unknown]
  - Chest pain [Unknown]
  - Fall [Unknown]
